FAERS Safety Report 8478222-2 (Version None)
Quarter: 2012Q2

REPORT INFORMATION
  Report Type: 
  Country: None (occurrence: None)
  Receive Date: 20120629
  Receipt Date: 20120615
  Transmission Date: 20120825
  Serious: Yes (Hospitalization)
  Sender: FDA-Public Use
  Company Number: DE-ALEXION-A201201105

PATIENT
  Sex: Female

DRUGS (14)
  1. SOLIRIS [Suspect]
     Dosage: 600 MG, UNK
     Route: 042
     Dates: start: 20120503
  2. KEPPRA [Concomitant]
     Dosage: 500 MG, BID
  3. RENAGEL [Concomitant]
     Dosage: 800 MG, 6/DAY
  4. AMPHO-MORONAL PIP [Concomitant]
     Dosage: UNK, 4/DAY
  5. CALCITRIOL [Concomitant]
     Dosage: 0.25 ?G, QD
  6. NEORECORMON [Concomitant]
     Dosage: 4000 IE, UNK
  7. SOLIRIS [Suspect]
     Dosage: 1200 MG
     Route: 042
     Dates: start: 20120407, end: 20120407
  8. CARVEDILOL [Concomitant]
     Dosage: 25 MG, BID
  9. SOLIRIS [Suspect]
     Dosage: 1200 MG
     Route: 042
     Dates: start: 20120418, end: 20120418
  10. DEKRISTOL [Concomitant]
     Dosage: 20000 IE, UNK
  11. SOLIRIS [Suspect]
     Dosage: 1200 MG
     Route: 042
     Dates: start: 20120320, end: 20120320
  12. RAMIPRIL [Concomitant]
     Dosage: 25 MG, QD
  13. DREISAVIT [Concomitant]
  14. SOLIRIS [Suspect]
     Indication: HAEMOLYTIC URAEMIC SYNDROME
     Dosage: 1200 MG
     Route: 042
     Dates: start: 20120318, end: 20120318

REACTIONS (2)
  - KLEBSIELLA INFECTION [None]
  - DEVICE RELATED SEPSIS [None]
